FAERS Safety Report 6465149-0 (Version None)
Quarter: 2009Q4

REPORT INFORMATION
  Report Type: 
  Country: None (occurrence: None)
  Receive Date: 20091201
  Receipt Date: 20091119
  Transmission Date: 20100525
  Serious: Yes (Hospitalization)
  Sender: FDA-Public Use
  Company Number: GB-PFIZER INC-2009300741

PATIENT
  Age: 45 Year
  Sex: Female

DRUGS (9)
  1. DOXORUBICIN HCL [Interacting]
     Indication: BREAST CANCER METASTATIC
     Dosage: 50 MG/M2, CYCLIC (2 CYCLES)
  2. ERYTHROMYCIN [Interacting]
     Indication: PROPHYLAXIS
  3. DOCETAXEL [Interacting]
     Indication: BREAST CANCER METASTATIC
     Dosage: 75 MG/M2, CYCLIC, 2 CYCLES
  4. OMEPRAZOLE [Suspect]
  5. GRANISETRON [Concomitant]
     Indication: PROPHYLAXIS OF NAUSEA AND VOMITING
  6. DEXAMETHASONE [Concomitant]
     Indication: PROPHYLAXIS OF NAUSEA AND VOMITING
  7. MORPHINE SULFATE [Concomitant]
  8. IBUPROFEN [Concomitant]
  9. METOCLOPRAMIDE [Concomitant]

REACTIONS (10)
  - ABDOMINAL DISTENSION [None]
  - ABDOMINAL PAIN [None]
  - DIARRHOEA [None]
  - DRUG INTERACTION [None]
  - ENTEROCOLITIS [None]
  - FEBRILE NEUTROPENIA [None]
  - HAEMATEMESIS [None]
  - JAUNDICE CHOLESTATIC [None]
  - RASH ERYTHEMATOUS [None]
  - VOMITING [None]
